FAERS Safety Report 14794406 (Version 1)
Quarter: 2018Q2

REPORT INFORMATION
  Report Type: Spontaneous
  Country: US (occurrence: US)
  Receive Date: 20180423
  Receipt Date: 20180423
  Transmission Date: 20180711
  Serious: No
  Sender: FDA-Public Use
  Company Number: US-LEXICON PHARMACEUTICALS, INC-18-1606-00345

PATIENT
  Sex: Female

DRUGS (12)
  1. TELOTRISTAT ETHYL [Suspect]
     Active Substance: TELOTRISTAT ETHYL
     Indication: CARCINOID TUMOUR
  2. CREON [Concomitant]
     Active Substance: PANCRELIPASE AMYLASE\PANCRELIPASE LIPASE\PANCRELIPASE PROTEASE
  3. LISINOPRIL. [Concomitant]
     Active Substance: LISINOPRIL
  4. OCTREOTIDE. [Concomitant]
     Active Substance: OCTREOTIDE
  5. DILAUDID [Concomitant]
     Active Substance: HYDROMORPHONE HYDROCHLORIDE
  6. TELOTRISTAT ETHYL [Suspect]
     Active Substance: TELOTRISTAT ETHYL
     Indication: CARCINOID SYNDROME
     Route: 048
     Dates: start: 20180125
  7. CICLOPIROX. [Concomitant]
     Active Substance: CICLOPIROX
  8. MULTIVITAMIN [Concomitant]
     Active Substance: VITAMINS
  9. COMPAZINE [Concomitant]
     Active Substance: PROCHLORPERAZINE MALEATE
  10. LISINOPRIL. [Concomitant]
     Active Substance: LISINOPRIL
     Dates: start: 201801
  11. NAPROXEN. [Concomitant]
     Active Substance: NAPROXEN
  12. OXYCODONE [Concomitant]
     Active Substance: OXYCODONE

REACTIONS (1)
  - Joint swelling [Unknown]

NARRATIVE: CASE EVENT DATE: 2018
